FAERS Safety Report 23428554 (Version 1)
Quarter: 2024Q1

REPORT INFORMATION
  Report Type: Spontaneous
  Country: US (occurrence: US)
  Receive Date: 20240122
  Receipt Date: 20240122
  Transmission Date: 20240410
  Serious: No
  Sender: FDA-Public Use
  Company Number: US-INCYTE CORPORATION-2024IN000494

PATIENT

DRUGS (2)
  1. JAKAFI [Suspect]
     Active Substance: RUXOLITINIB
     Indication: Myelofibrosis
     Dosage: 15 MILLIGRAM, BID (W/OR W/O FOOD AT ABOUT THE SAME TIME DAILY)
     Route: 048
  2. LEVOTHYROXINE [Concomitant]
     Active Substance: LEVOTHYROXINE\LEVOTHYROXINE SODIUM
     Indication: Product used for unknown indication
     Dosage: 300 MICROGRAM
     Route: 065

REACTIONS (7)
  - Night sweats [Unknown]
  - Tinea pedis [Unknown]
  - Oral herpes [Unknown]
  - Fatigue [Unknown]
  - Somnolence [Unknown]
  - Dyspnoea exertional [Unknown]
  - Constipation [Unknown]
